FAERS Safety Report 9345909 (Version 1)
Quarter: 2013Q2

REPORT INFORMATION
  Report Type: Spontaneous
  Country: JP (occurrence: JP)
  Receive Date: 20130613
  Receipt Date: 20130613
  Transmission Date: 20140414
  Serious: Yes (Other)
  Sender: FDA-Public Use
  Company Number: JP-009507513-1306JPN000345

PATIENT
  Age: 48 Year
  Sex: Male

DRUGS (2)
  1. PROPECIA TABLETS 0.2MG [Suspect]
     Dosage: UNK
     Route: 048
     Dates: start: 2011
  2. MINOXIDIL [Suspect]
     Route: 048

REACTIONS (2)
  - Rhabdomyolysis [Unknown]
  - Eczema [Unknown]
